APPROVED DRUG PRODUCT: EPHEDRINE SULFATE
Active Ingredient: EPHEDRINE SULFATE
Strength: 50MG/ML (50MG/ML)
Dosage Form/Route: SOLUTION;INTRAVENOUS
Application: N208609 | Product #001
Applicant: RENEW PHARMACEUTICALS LTD
Approved: Mar 1, 2017 | RLD: No | RS: No | Type: DISCN